FAERS Safety Report 9720516 (Version 1)
Quarter: 2013Q4

REPORT INFORMATION
  Report Type: Spontaneous
  Country: GB (occurrence: GB)
  Receive Date: 20131129
  Receipt Date: 20131129
  Transmission Date: 20140711
  Serious: Yes (Other)
  Sender: FDA-Public Use
  Company Number: GB-JNJFOC-20131115607

PATIENT
  Age: 54 Year
  Sex: Female

DRUGS (7)
  1. XARELTO [Suspect]
     Indication: THROMBOSIS PROPHYLAXIS
     Route: 048
     Dates: start: 20131008, end: 20131011
  2. FOLIC ACID [Concomitant]
     Route: 065
  3. COLAZIDE [Concomitant]
     Route: 065
  4. METHOTREXATE [Concomitant]
     Route: 048
  5. PIZOTIFEN [Concomitant]
     Route: 048
  6. PREDNISOLON [Concomitant]
     Route: 065
  7. THYROXIN [Concomitant]
     Route: 048

REACTIONS (1)
  - Deep vein thrombosis [Recovering/Resolving]
